FAERS Safety Report 25117744 (Version 1)
Quarter: 2025Q1

REPORT INFORMATION
  Report Type: Spontaneous
  Country: US (occurrence: US)
  Receive Date: 20250325
  Receipt Date: 20250325
  Transmission Date: 20250409
  Serious: No
  Sender: MISSION PHARMACAL COMPANY
  Company Number: US-Mission Pharmacal Company-2173574

PATIENT
  Age: 41 Year
  Sex: Female

DRUGS (5)
  1. THIOLA EC [Suspect]
     Active Substance: TIOPRONIN
     Indication: Cystinuria
     Dates: start: 20250307
  2. POTASSIUM CITRATE [Concomitant]
     Active Substance: POTASSIUM CITRATE
  3. ZEPBOUND [Concomitant]
     Active Substance: TIRZEPATIDE
  4. AMITRIPTYLINE [Concomitant]
     Active Substance: AMITRIPTYLINE
  5. VALSARTAN [Concomitant]
     Active Substance: VALSARTAN

REACTIONS (2)
  - Pyrexia [Unknown]
  - Myalgia [Unknown]
